FAERS Safety Report 17904528 (Version 2)
Quarter: 2020Q3

REPORT INFORMATION
  Report Type: Spontaneous
  Country: FR (occurrence: FR)
  Receive Date: 20200617
  Receipt Date: 20200707
  Transmission Date: 20201103
  Serious: Yes (Hospitalization)
  Sender: FDA-Public Use
  Company Number: FR-ACCORD-185537

PATIENT
  Age: 68 Year
  Sex: Male

DRUGS (1)
  1. CAPECITABINE BIOGARAN [Suspect]
     Active Substance: CAPECITABINE
     Indication: NEOPLASM MALIGNANT
     Dosage: ACCORDING TO THE CYCLE, 500 MG FILM?COATED TABLET
     Route: 048
     Dates: start: 20200411, end: 20200503

REACTIONS (2)
  - Colitis [Recovered/Resolved]
  - Palmar-plantar erythrodysaesthesia syndrome [Recovered/Resolved]

NARRATIVE: CASE EVENT DATE: 20200503
